FAERS Safety Report 11273036 (Version 1)
Quarter: 2015Q3

REPORT INFORMATION
  Report Type: Spontaneous
  Country: JP (occurrence: JP)
  Receive Date: 20150715
  Receipt Date: 20150715
  Transmission Date: 20151125
  Serious: Yes (Hospitalization)
  Sender: FDA-Public Use
  Company Number: JP-PFIZER INC-2015180464

PATIENT
  Age: 6 Year
  Sex: Male

DRUGS (1)
  1. GENOTROPIN GOQUICK [Suspect]
     Active Substance: SOMATROPIN
     Dosage: UNK
     Route: 058
     Dates: end: 2015

REACTIONS (2)
  - Fall [Unknown]
  - Femur fracture [Recovered/Resolved]

NARRATIVE: CASE EVENT DATE: 20150526
